FAERS Safety Report 7342037-9 (Version None)
Quarter: 2011Q1

REPORT INFORMATION
  Report Type: 
  Country: None (occurrence: None)
  Receive Date: 20110309
  Receipt Date: 20110304
  Transmission Date: 20110831
  Serious: Yes (Hospitalization, Disabling, Other)
  Sender: FDA-Public Use
  Company Number: US-ABBOTT-11P-163-0707741-00

PATIENT
  Sex: Male
  Weight: 81.72 kg

DRUGS (6)
  1. HYTRIN [Concomitant]
     Indication: HYPERTENSION
     Route: 048
  2. HUMIRA [Suspect]
     Indication: ANKYLOSING SPONDYLITIS
     Route: 058
     Dates: start: 20070101
  3. TOPROL-XL [Concomitant]
     Indication: HYPERTENSION
     Route: 048
  4. FOLIC ACID [Concomitant]
     Indication: VITAMIN SUPPLEMENTATION
     Route: 048
  5. MULTI-VITAMIN [Concomitant]
     Indication: VITAMIN SUPPLEMENTATION
     Route: 048
  6. METHOTREXATE [Concomitant]
     Indication: ANKYLOSING SPONDYLITIS
     Route: 048

REACTIONS (6)
  - CEREBROVASCULAR ACCIDENT [None]
  - COGNITIVE DISORDER [None]
  - MUSCULAR WEAKNESS [None]
  - HAEMORRHAGIC STROKE [None]
  - HYPOAESTHESIA [None]
  - CAROTID ARTERY OCCLUSION [None]
